FAERS Safety Report 7862367-1 (Version None)
Quarter: 2011Q4

REPORT INFORMATION
  Report Type: 
  Country: None (occurrence: None)
  Receive Date: 20111025
  Receipt Date: 20111013
  Transmission Date: 20120403
  Serious: Yes (Hospitalization, Other)
  Sender: FDA-Public Use
  Company Number: TPA2011A06652

PATIENT
  Age: 69 Year
  Sex: Male
  Weight: 76.6579 kg

DRUGS (6)
  1. ASPIRIN [Concomitant]
  2. ACTOS [Suspect]
     Indication: TYPE 2 DIABETES MELLITUS
     Dates: start: 20020501, end: 20110915
  3. ATENOLOL [Concomitant]
  4. FINASTERIDE [Concomitant]
  5. LIPITOR [Concomitant]
  6. METFORMIN HCL [Concomitant]

REACTIONS (2)
  - URINARY TRACT INFECTION [None]
  - BLADDER TRANSITIONAL CELL CARCINOMA RECURRENT [None]
